FAERS Safety Report 16335984 (Version 1)
Quarter: 2019Q2

REPORT INFORMATION
  Report Type: Spontaneous
  Country: MX (occurrence: MX)
  Receive Date: 20190521
  Receipt Date: 20190521
  Transmission Date: 20190711
  Serious: Yes (Other)
  Sender: FDA-Public Use
  Company Number: MX-ASTRAZENECA-2019SE73946

PATIENT
  Age: 28321 Day
  Sex: Female
  Weight: 55 kg

DRUGS (3)
  1. FORXIGA [Suspect]
     Active Substance: DAPAGLIFLOZIN
     Indication: DIABETES MELLITUS
     Route: 048
     Dates: start: 20090513
  2. ATEMPERATOR LP 300 [BROMAZEPAM] [Interacting]
     Active Substance: BROMAZEPAM
     Indication: HEADACHE
     Route: 048
     Dates: start: 2016
  3. MICARDIS [Interacting]
     Active Substance: TELMISARTAN
     Indication: HYPERTENSION
     Route: 048
     Dates: start: 20090513

REACTIONS (4)
  - Blindness [Not Recovered/Not Resolved]
  - Stress [Not Recovered/Not Resolved]
  - Headache [Not Recovered/Not Resolved]
  - Drug interaction [Unknown]

NARRATIVE: CASE EVENT DATE: 20150513
